FAERS Safety Report 10136191 (Version 1)
Quarter: 2014Q2

REPORT INFORMATION
  Report Type: Report from Study
  Country: CA (occurrence: CA)
  Receive Date: 20140429
  Receipt Date: 20140429
  Transmission Date: 20141212
  Serious: Yes (Hospitalization)
  Sender: FDA-Public Use
  Company Number: CA-BRISTOL-MYERS SQUIBB COMPANY-20417309

PATIENT
  Age: 79 Year
  Sex: Male

DRUGS (5)
  1. ORENCIA [Suspect]
     Indication: RHEUMATOID ARTHRITIS
     Dosage: 1DF:500 UNIT NOS
     Dates: start: 20130912
  2. OXYGEN [Concomitant]
  3. PREDNISONE [Concomitant]
  4. ALLOPURINOL [Concomitant]
  5. VITAMINS [Concomitant]

REACTIONS (4)
  - Mood swings [Unknown]
  - Central nervous system lesion [Unknown]
  - Arthritis [Unknown]
  - Drug ineffective [Unknown]
